FAERS Safety Report 7201291-4 (Version None)
Quarter: 2010Q4

REPORT INFORMATION
  Report Type: 
  Country: None (occurrence: None)
  Receive Date: 20101227
  Receipt Date: 20101227
  Transmission Date: 20110411
  Serious: No
  Sender: FDA-Public Use
  Company Number: None

PATIENT
  Age: 52 Year
  Sex: Female
  Weight: 55.7924 kg

DRUGS (1)
  1. ROCEPHIN [Suspect]
     Indication: PNEUMONIA
     Dosage: 1 GRAM PER DAY ONCE A DAY IV DRIP
     Route: 041
     Dates: start: 20101208, end: 20101214

REACTIONS (7)
  - AXILLARY PAIN [None]
  - BREAST ENGORGEMENT [None]
  - BREAST PAIN [None]
  - BURNING SENSATION [None]
  - CRYING [None]
  - DYSSTASIA [None]
  - PHLEBITIS [None]
